FAERS Safety Report 8523425-1 (Version None)
Quarter: 2012Q3

REPORT INFORMATION
  Report Type: 
  Country: None (occurrence: None)
  Receive Date: 20120713
  Receipt Date: 20120713
  Transmission Date: 20120928
  Serious: Yes (Hospitalization)
  Sender: FDA-Public Use
  Company Number: None

PATIENT
  Age: 61 Year
  Sex: Male
  Weight: 63.4 kg

DRUGS (1)
  1. PACLITAXEL [Suspect]
     Dosage: 80 MG QWEEK IV
     Route: 042
     Dates: start: 20111216, end: 20120106

REACTIONS (3)
  - VOMITING [None]
  - NAUSEA [None]
  - DIZZINESS [None]
